FAERS Safety Report 13725708 (Version 1)
Quarter: 2017Q3

REPORT INFORMATION
  Report Type: Spontaneous
  Country: US (occurrence: US)
  Receive Date: 20170706
  Receipt Date: 20170706
  Transmission Date: 20171127
  Serious: Yes (Life-Threatening, Hospitalization)
  Sender: FDA-Public Use
  Company Number: None

PATIENT
  Age: 55 Year
  Sex: Male
  Weight: 71.2 kg

DRUGS (1)
  1. PENTAMIDINE [Suspect]
     Active Substance: PENTAMIDINE
     Indication: OPPORTUNISTIC INFECTION PROPHYLAXIS
     Dosage: ?          OTHER DOSE:MG;OTHER FREQUENCY:ONCE;?
     Route: 055
     Dates: start: 20170510, end: 20170510

REACTIONS (2)
  - Cardio-respiratory arrest [None]
  - Pulse absent [None]

NARRATIVE: CASE EVENT DATE: 20170510
